FAERS Safety Report 12974678 (Version 3)
Quarter: 2017Q2

REPORT INFORMATION
  Report Type: Report from Study
  Country: JP (occurrence: JP)
  Receive Date: 20161125
  Receipt Date: 20170414
  Transmission Date: 20170830
  Serious: Yes (Death, Life-Threatening, Other)
  Sender: FDA-Public Use
  Company Number: JP-AMGEN-JPNCT2016167119

PATIENT
  Age: 82 Year
  Sex: Female
  Weight: 43 kg

DRUGS (38)
  1. CINACALCET HCL [Suspect]
     Active Substance: CINACALCET HYDROCHLORIDE
     Indication: HYPERPARATHYROIDISM PRIMARY
     Dosage: 25 MG, BID
     Route: 048
     Dates: start: 20150302, end: 20150420
  2. LUPRAC [Concomitant]
     Active Substance: TORSEMIDE
     Indication: CARDIAC FAILURE CHRONIC
     Dosage: 4 MG, UNK
     Route: 048
     Dates: end: 20150822
  3. BETANAMIN [Concomitant]
     Active Substance: PEMOLINE
     Dosage: 20 MG, UNK
     Route: 048
     Dates: start: 20151102, end: 20151104
  4. KALIMATE [Concomitant]
     Active Substance: CALCIUM POLYSTYRENE SULFONATE
     Indication: CHRONIC KIDNEY DISEASE
     Dosage: 50 MG, UNK
     Route: 048
     Dates: start: 20150808, end: 20151123
  5. FLUMARIN [Concomitant]
     Active Substance: FLOMOXEF SODIUM
     Indication: URINARY TRACT INFECTION
     Dosage: 2 G, UNK
     Route: 065
     Dates: start: 20150411, end: 20150415
  6. OLOPATADINE HYDROCHLORIDE. [Concomitant]
     Active Substance: OLOPATADINE HYDROCHLORIDE
     Indication: URTICARIA
     Dosage: 10 MG, UNK
     Route: 048
     Dates: start: 20160116, end: 20160202
  7. CINACALCET HCL [Suspect]
     Active Substance: CINACALCET HYDROCHLORIDE
     Dosage: 25 MG, QD
     Route: 048
     Dates: start: 20151208, end: 20151221
  8. CINACALCET HCL [Suspect]
     Active Substance: CINACALCET HYDROCHLORIDE
     Dosage: 25 MG, QD
     Route: 048
     Dates: start: 20160114, end: 20160208
  9. CELESTANA [Concomitant]
     Indication: URTICARIA
     Dosage: 1 DF, UNK
     Route: 048
     Dates: start: 20150728, end: 20150817
  10. BETANAMIN [Concomitant]
     Active Substance: PEMOLINE
     Indication: NARCOLEPSY
     Dosage: 10 MG, UNK
     Route: 048
     Dates: start: 20151027, end: 20151101
  11. CINACALCET HCL [Suspect]
     Active Substance: CINACALCET HYDROCHLORIDE
     Dosage: UNK UNK, BID
     Route: 048
     Dates: start: 20150421, end: 20150805
  12. CINACALCET HCL [Suspect]
     Active Substance: CINACALCET HYDROCHLORIDE
     Dosage: 25 MG, QD
     Route: 048
     Dates: start: 20150806, end: 20150816
  13. CINACALCET HCL [Suspect]
     Active Substance: CINACALCET HYDROCHLORIDE
     Dosage: 25 MG, BID
     Route: 048
     Dates: start: 20150817, end: 20150928
  14. GASMOTIN [Concomitant]
     Active Substance: MOSAPRIDE CITRATE
     Dosage: 15 MG, UNK
     Route: 048
     Dates: start: 20150801, end: 20160208
  15. RIVASTACH [Concomitant]
     Active Substance: RIVASTIGMINE
     Indication: DEMENTIA ALZHEIMER^S TYPE
     Dosage: 4.5 MG, UNK
     Route: 062
     Dates: start: 20150323, end: 20150522
  16. POLARAMINE [Concomitant]
     Active Substance: DEXCHLORPHENIRAMINE MALEATE
     Indication: URTICARIA
     Dosage: 2 MG, UNK
     Route: 048
     Dates: start: 20150805, end: 20150818
  17. SULBACILLIN [Concomitant]
     Active Substance: AMPICILLIN SODIUM\SULBACTAM SODIUM
     Indication: PNEUMONIA
     Dosage: 3 G, UNK
     Route: 042
     Dates: start: 20150501, end: 20150506
  18. TAKEPRON [Concomitant]
     Active Substance: LANSOPRAZOLE
     Indication: GASTRIC ULCER HAEMORRHAGE
     Dosage: 15 MG, UNK
     Route: 048
     Dates: start: 20150302, end: 20150730
  19. CARDENALIN [Concomitant]
     Active Substance: DOXAZOSIN MESYLATE
     Indication: HYPERTENSION
     Dosage: 2 MG, UNK
     Route: 048
     Dates: start: 20150818, end: 20160208
  20. LASIX [Concomitant]
     Active Substance: FUROSEMIDE
     Indication: CARDIAC FAILURE CHRONIC
     Dosage: 40 MG, UNK
     Route: 048
     Dates: start: 20150830, end: 20160130
  21. LASIX [Concomitant]
     Active Substance: FUROSEMIDE
     Indication: CHRONIC KIDNEY DISEASE
     Dosage: 100 MG, UNK
     Route: 065
     Dates: start: 20160130, end: 20160213
  22. SULBACILLIN [Concomitant]
     Active Substance: AMPICILLIN SODIUM\SULBACTAM SODIUM
     Indication: URINARY TRACT INFECTION
  23. MEROPEN [Concomitant]
     Active Substance: MEROPENEM
     Indication: URINARY TRACT INFECTION
     Dosage: 1 G, UNK
     Route: 041
     Dates: start: 20150603, end: 20150606
  24. PREDOPA [Concomitant]
     Active Substance: DOPAMINE\DOPAMINE HYDROCHLORIDE
     Indication: CIRCULATORY COLLAPSE
     Dosage: 48 ML, UNK
     Route: 041
     Dates: start: 20160131, end: 20160213
  25. CINACALCET HCL [Suspect]
     Active Substance: CINACALCET HYDROCHLORIDE
     Dosage: UNK UNK, BID
     Route: 048
     Dates: start: 20150929, end: 20151109
  26. CINACALCET HCL [Suspect]
     Active Substance: CINACALCET HYDROCHLORIDE
     Dosage: 25 MG, BID
     Route: 048
     Dates: start: 20151222, end: 20160113
  27. AMLODIPINE [Concomitant]
     Active Substance: AMLODIPINE BESYLATE
     Indication: HYPERTENSION
     Dosage: 5 MG, UNK
     Route: 048
     Dates: start: 20150801, end: 20150807
  28. ALLOPURINOL. [Concomitant]
     Active Substance: ALLOPURINOL
     Indication: HYPERURICAEMIA
     Dosage: 50 MG, UNK
     Route: 048
     Dates: start: 20151124, end: 20160125
  29. LANSOPRAZOLE. [Concomitant]
     Active Substance: LANSOPRAZOLE
     Indication: GASTRIC ULCER HAEMORRHAGE
     Dosage: 15 MG, UNK
     Route: 048
     Dates: start: 20151124, end: 20160208
  30. SULPIRIDE [Concomitant]
     Active Substance: SULPIRIDE
     Dosage: 350 MG, UNK
     Route: 048
     Dates: start: 20150420, end: 20150424
  31. BETANAMIN [Concomitant]
     Active Substance: PEMOLINE
     Dosage: 30 MG, UNK
     Route: 048
     Dates: start: 20151109, end: 20160208
  32. SAMSCA [Concomitant]
     Active Substance: TOLVAPTAN
     Indication: CARDIAC FAILURE CHRONIC
     Dosage: 15 MG, UNK
     Route: 048
     Dates: start: 20160203, end: 20160208
  33. CINACALCET HCL [Suspect]
     Active Substance: CINACALCET HYDROCHLORIDE
     Dosage: 25 MG, BID
     Route: 048
     Dates: start: 20151110, end: 20151207
  34. ROZEREM [Concomitant]
     Active Substance: RAMELTEON
     Dosage: 8 MG, UNK
     Route: 048
     Dates: start: 20150306, end: 20150617
  35. MAINTATE [Concomitant]
     Active Substance: BISOPROLOL FUMARATE
     Indication: CARDIAC FAILURE CHRONIC
     Dosage: 2.5 MG, UNK
     Route: 048
     Dates: start: 20150617, end: 20160208
  36. AMLODIPINE [Concomitant]
     Active Substance: AMLODIPINE BESYLATE
     Dosage: 10 MG, UNK
     Route: 048
     Dates: start: 20150808, end: 20160208
  37. ALLOPURINOL. [Concomitant]
     Active Substance: ALLOPURINOL
     Dosage: 100 MG, UNK
     Route: 048
     Dates: start: 20160126, end: 20160208
  38. MAXIPIME [Concomitant]
     Active Substance: CEFEPIME HYDROCHLORIDE
     Indication: URINARY TRACT INFECTION
     Dosage: 2 G, UNK
     Route: 042
     Dates: start: 20150826, end: 20150831

REACTIONS (7)
  - Pneumonia [Recovered/Resolved]
  - Anaemia [Recovering/Resolving]
  - Urinary tract infection [Recovered/Resolved]
  - Renal failure [Fatal]
  - Urticaria [Recovered/Resolved]
  - Urinary tract infection [Recovered/Resolved]
  - Cardiac failure [Not Recovered/Not Resolved]

NARRATIVE: CASE EVENT DATE: 20150302
